FAERS Safety Report 15292301 (Version 2)
Quarter: 2018Q3

REPORT INFORMATION
  Report Type: Spontaneous
  Country: GB (occurrence: GB)
  Receive Date: 20180818
  Receipt Date: 20180910
  Transmission Date: 20181010
  Serious: Yes (Other)
  Sender: FDA-Public Use
  Company Number: GB-009507513-1808GBR006757

PATIENT
  Age: 49 Year
  Sex: Male

DRUGS (13)
  1. ATORVASTATIN [Concomitant]
     Active Substance: ATORVASTATIN
  2. PREDNISOLONE. [Concomitant]
     Active Substance: PREDNISOLONE
  3. ASPIRIN. [Concomitant]
     Active Substance: ASPIRIN
  4. FINASTERIDE. [Concomitant]
     Active Substance: FINASTERIDE
  5. OXYCODONE [Concomitant]
     Active Substance: OXYCODONE
  6. DOXAZOSIN [Concomitant]
     Active Substance: DOXAZOSIN\DOXAZOSIN MESYLATE
  7. CUBICIN [Suspect]
     Active Substance: DAPTOMYCIN
     Indication: RENAL DISORDER
  8. ALLOPURINOL. [Concomitant]
     Active Substance: ALLOPURINOL
  9. TAMSULOSIN HYDROCHLORIDE. [Concomitant]
     Active Substance: TAMSULOSIN HYDROCHLORIDE
  10. CUBICIN [Suspect]
     Active Substance: DAPTOMYCIN
     Indication: KIDNEY INFECTION
     Dosage: 500MG IV OD INFUSION OVER 30 MINS FOR A 14 DAYS COURSE
     Route: 042
     Dates: start: 20180805, end: 20180819
  11. LANSOPRAZOLE. [Concomitant]
     Active Substance: LANSOPRAZOLE
  12. CYCLOSPORINE. [Concomitant]
     Active Substance: CYCLOSPORINE
  13. MYCOPHENOLATE MOFETIL. [Concomitant]
     Active Substance: MYCOPHENOLATE MOFETIL

REACTIONS (2)
  - Deafness [Recovered/Resolved]
  - Glomerular filtration rate abnormal [Unknown]

NARRATIVE: CASE EVENT DATE: 201808
